FAERS Safety Report 24851848 (Version 1)
Quarter: 2025Q1

REPORT INFORMATION
  Report Type: Spontaneous
  Country: US (occurrence: US)
  Receive Date: 20250116
  Receipt Date: 20250116
  Transmission Date: 20250409
  Serious: No
  Sender: SK LIFE SCIENCE
  Company Number: US-SK LIFE SCIENCE, INC-SKPVG-2024-001866

PATIENT

DRUGS (8)
  1. XCOPRI [Suspect]
     Active Substance: CENOBAMATE
     Indication: Seizure
     Route: 048
     Dates: start: 202206
  2. XCOPRI [Suspect]
     Active Substance: CENOBAMATE
     Indication: Focal dyscognitive seizures
     Route: 048
  3. XCOPRI [Suspect]
     Active Substance: CENOBAMATE
     Dosage: 150 MILLIGRAM, QD
     Route: 048
  4. XCOPRI [Suspect]
     Active Substance: CENOBAMATE
     Route: 048
     Dates: start: 202407, end: 202407
  5. XCOPRI [Suspect]
     Active Substance: CENOBAMATE
     Dosage: 150 MILLIGRAM, QD (AT NIGHT) (HE^S CUTTING THE PILLS- THE 100 MG TABLETS IN HALF TO TAKE ONE AND ONE
     Route: 048
     Dates: start: 202407, end: 2024
  6. XCOPRI [Suspect]
     Active Substance: CENOBAMATE
     Dosage: 150 MILLIGRAM, QD (AT NIGHT)
     Route: 048
     Dates: start: 2024
  7. FYCOMPA [Concomitant]
     Active Substance: PERAMPANEL
     Indication: Focal dyscognitive seizures
     Route: 065
  8. KEPPRA [Concomitant]
     Active Substance: LEVETIRACETAM
     Indication: Focal dyscognitive seizures
     Route: 065

REACTIONS (5)
  - Seizure [Recovered/Resolved]
  - Wrong technique in product usage process [Recovered/Resolved]
  - Partial seizures [Recovered/Resolved]
  - Fatigue [Recovering/Resolving]
  - Irritability [Recovering/Resolving]

NARRATIVE: CASE EVENT DATE: 20240701
